FAERS Safety Report 5230141-0 (Version None)
Quarter: 2007Q1

REPORT INFORMATION
  Report Type: 
  Country: None (occurrence: None)
  Receive Date: 20070206
  Receipt Date: 20060908
  Transmission Date: 20070707
  Serious: No
  Sender: FDA-Public Use
  Company Number: US-GLAXOSMITHKLINE-A0616963A

PATIENT
  Age: 28 Year
  Sex: Male

DRUGS (1)
  1. PAXIL CR [Suspect]
     Indication: PANIC DISORDER
     Dosage: 25MG PER DAY
     Route: 048
     Dates: start: 20060712, end: 20060714

REACTIONS (7)
  - ABASIA [None]
  - DIZZINESS [None]
  - DYSSTASIA [None]
  - FEELING HOT [None]
  - FLUSHING [None]
  - HYPERSENSITIVITY [None]
  - NAUSEA [None]
